FAERS Safety Report 5664914-7 (Version None)
Quarter: 2008Q1

REPORT INFORMATION
  Report Type: 
  Country: None (occurrence: None)
  Receive Date: 20080314
  Receipt Date: 20080304
  Transmission Date: 20080703
  Serious: Yes (Hospitalization, Disabling)
  Sender: FDA-Public Use
  Company Number: JP-PFIZER INC-2008006669

PATIENT
  Sex: Male
  Weight: 70 kg

DRUGS (2)
  1. GABAPEN [Suspect]
     Indication: EPILEPSY
     Route: 048
  2. DEPAKENE [Suspect]
     Route: 048

REACTIONS (13)
  - BLOOD ALKALINE PHOSPHATASE INCREASED [None]
  - BLOOD LACTATE DEHYDROGENASE INCREASED [None]
  - CEREBRAL HAEMATOMA [None]
  - DYSSTASIA [None]
  - FACE OEDEMA [None]
  - FEELING ABNORMAL [None]
  - GAMMA-GLUTAMYLTRANSFERASE INCREASED [None]
  - GENERALISED OEDEMA [None]
  - OEDEMA [None]
  - THYROID FUNCTION TEST ABNORMAL [None]
  - URINARY INCONTINENCE [None]
  - WEIGHT DECREASED [None]
  - WEIGHT INCREASED [None]
